FAERS Safety Report 18618825 (Version 2)
Quarter: 2020Q4

REPORT INFORMATION
  Report Type: Report from Study
  Country: None (occurrence: US)
  Receive Date: 20201215
  Receipt Date: 20201231
  Transmission Date: 20210114
  Serious: Yes (Other)
  Sender: FDA-Public Use
  Company Number: US-ABBVIE-20K-163-3684839-00

PATIENT
  Age: 73 Year
  Sex: Male

DRUGS (1)
  1. HUMIRA [Suspect]
     Active Substance: ADALIMUMAB
     Indication: PSORIASIS
     Route: 058

REACTIONS (9)
  - Neuropathy peripheral [Unknown]
  - Pruritus [Recovering/Resolving]
  - Atrial fibrillation [Not Recovered/Not Resolved]
  - Intestinal haemorrhage [Recovering/Resolving]
  - Knee arthroplasty [Unknown]
  - Colonoscopy abnormal [Not Recovered/Not Resolved]
  - Peripheral coldness [Unknown]
  - Arthralgia [Unknown]
  - Spinal operation [Not Recovered/Not Resolved]

NARRATIVE: CASE EVENT DATE: 202003
